FAERS Safety Report 7507995-8 (Version None)
Quarter: 2011Q2

REPORT INFORMATION
  Report Type: 
  Country: None (occurrence: None)
  Receive Date: 20110527
  Receipt Date: 20110519
  Transmission Date: 20111010
  Serious: No
  Sender: FDA-Public Use
  Company Number: US-US-EMD SERONO, INC.-7059713

PATIENT
  Sex: Female

DRUGS (6)
  1. ADDERALL 10 [Suspect]
  2. REBIF [Suspect]
     Indication: MULTIPLE SCLEROSIS
     Route: 058
     Dates: start: 20110308, end: 20110511
  3. NORVASC [Concomitant]
  4. BACLOFEN [Suspect]
  5. WELLBUTRIN [Concomitant]
  6. LEVOXYL [Concomitant]

REACTIONS (2)
  - INJECTION SITE REACTION [None]
  - HEPATIC ENZYME INCREASED [None]
